FAERS Safety Report 23063752 (Version 1)
Quarter: 2023Q4

REPORT INFORMATION
  Report Type: Spontaneous
  Country: US (occurrence: US)
  Receive Date: 20231013
  Receipt Date: 20231013
  Transmission Date: 20240110
  Serious: No
  Sender: FDA-Public Use
  Company Number: US-NOVEN PHARMACEUTICALS, INC.-2023-NOV-US000907

PATIENT
  Sex: Male
  Weight: 99.773 kg

DRUGS (2)
  1. XELSTRYM [Suspect]
     Active Substance: DEXTROAMPHETAMINE
     Indication: Autism spectrum disorder
     Dosage: UNKNOWN
     Route: 062
  2. XELSTRYM [Suspect]
     Active Substance: DEXTROAMPHETAMINE
     Indication: Off label use

REACTIONS (4)
  - Application site erythema [Unknown]
  - Application site pain [Unknown]
  - Application site rash [Unknown]
  - Off label use [Unknown]
